FAERS Safety Report 20873455 (Version 3)
Quarter: 2022Q3

REPORT INFORMATION
  Report Type: Report from Study
  Country: CO (occurrence: CO)
  Receive Date: 20220525
  Receipt Date: 20220926
  Transmission Date: 20221027
  Serious: Yes (Hospitalization, Other)
  Sender: FDA-Public Use
  Company Number: CO-ABBVIE-22K-036-4407665-00

PATIENT
  Age: 61 Year
  Sex: Male
  Weight: 54 kg

DRUGS (2)
  1. ZEMPLAR [Suspect]
     Active Substance: PARICALCITOL
     Indication: Hyperparathyroidism secondary
     Route: 042
     Dates: start: 20210209, end: 20220823
  2. ERYTHROPOIETIN [Concomitant]
     Active Substance: ERYTHROPOIETIN
     Indication: Anaemia
     Dosage: DURING DIALYSIS TREATMENT
     Dates: start: 2020

REACTIONS (9)
  - Surgery [Recovering/Resolving]
  - General physical health deterioration [Recovering/Resolving]
  - Catheter placement [Recovering/Resolving]
  - Catheter placement [Recovering/Resolving]
  - Device physical property issue [Unknown]
  - Device occlusion [Unknown]
  - Sciatica [Recovering/Resolving]
  - Musculoskeletal disorder [Recovering/Resolving]
  - Movement disorder [Recovering/Resolving]

NARRATIVE: CASE EVENT DATE: 20210801
